FAERS Safety Report 14700763 (Version 1)
Quarter: 2018Q1

REPORT INFORMATION
  Report Type: Spontaneous
  Country: US (occurrence: US)
  Receive Date: 20180328
  Receipt Date: 20180328
  Transmission Date: 20180509
  Serious: Yes (Hospitalization)
  Sender: FDA-Public Use
  Company Number: None

PATIENT
  Age: 74 Year
  Sex: Female
  Weight: 62.4 kg

DRUGS (8)
  1. SAVAYSA [Concomitant]
     Active Substance: EDOXABAN TOSYLATE
  2. OXYCODONE [Concomitant]
     Active Substance: OXYCODONE
  3. RIBOCICLIB 400MG [Suspect]
     Active Substance: RIBOCICLIB
     Indication: ENDOMETRIAL CANCER
     Route: 048
  4. MULTIVITAMIN [Concomitant]
     Active Substance: VITAMINS
  5. VITAMIN D3 [Concomitant]
     Active Substance: CHOLECALCIFEROL
  6. SENNEA-S [Concomitant]
  7. LETROZOLE 2.5MG [Suspect]
     Active Substance: LETROZOLE
     Indication: ENDOMETRIAL CANCER
     Route: 048
     Dates: start: 20180130, end: 20180312
  8. CALCIUM [Concomitant]
     Active Substance: CALCIUM

REACTIONS (2)
  - Bone pain [None]
  - Therapy non-responder [None]

NARRATIVE: CASE EVENT DATE: 20180324
